FAERS Safety Report 4456242-2 (Version None)
Quarter: 2004Q3

REPORT INFORMATION
  Report Type: 
  Country: None (occurrence: None)
  Receive Date: 20040920
  Receipt Date: 20040907
  Transmission Date: 20050211
  Serious: Yes (Hospitalization)
  Sender: FDA-Public Use
  Company Number: 2004SE04994

PATIENT
  Age: 70 Year
  Sex: Male

DRUGS (2)
  1. BLOPRESS [Suspect]
     Indication: HYPERTENSION
     Dates: end: 20040617
  2. BLOPRESS [Suspect]
     Indication: HYPERTENSION
     Dates: start: 20040812

REACTIONS (1)
  - DERMATITIS [None]
